FAERS Safety Report 7030380-2 (Version None)
Quarter: 2011Q1

REPORT INFORMATION
  Report Type: 
  Country: None (occurrence: None)
  Receive Date: 20101001
  Receipt Date: 20100921
  Transmission Date: 20110831
  Serious: Yes (Hospitalization)
  Sender: FDA-Public Use
  Company Number: 2010US005221

PATIENT
  Age: 27 Year
  Sex: Male
  Weight: 76.9 kg

DRUGS (12)
  1. PALONOSETRON HYDROCHLORIDE [Suspect]
     Indication: PROPHYLAXIS OF NAUSEA AND VOMITING
     Dosage: 0.25 MG, SINGLE, INTRAVENOUS
     Route: 042
     Dates: start: 20100908, end: 20100908
  2. DEXAMETHASONE [Suspect]
     Indication: PROPHYLAXIS OF NAUSEA AND VOMITING
     Dosage: 20 MG, SINGLE, INTRAVENOUS
     Route: 042
     Dates: start: 20100908, end: 20100908
  3. EXTRA STRENGTH TYLENOL [Concomitant]
  4. HYDROCHLOROTHIAZIDE [Concomitant]
  5. OXYGEN (OXYGEN) [Concomitant]
  6. CARBOPLATIN [Concomitant]
  7. METOPROLOL TARTRATE [Concomitant]
  8. COMPAZINE [Suspect]
     Indication: PROPHYLAXIS OF NAUSEA AND VOMITING
     Dosage: 10 MG, TID, ORAL
     Route: 048
     Dates: start: 20100909, end: 20100910
  9. PLACEBO [Suspect]
     Indication: PROPHYLAXIS OF NAUSEA AND VOMITING
     Dosage: 125 MG, QD, ORAL, 8MG, QD, ORAL
     Route: 048
     Dates: start: 20100908, end: 20100908
  10. PLACEBO [Suspect]
     Indication: PROPHYLAXIS OF NAUSEA AND VOMITING
     Dosage: 125 MG, QD, ORAL, 8MG, QD, ORAL
     Route: 048
     Dates: start: 20100909, end: 20100910
  11. DILTIAZEM [Concomitant]
  12. KEFLEX [Concomitant]

REACTIONS (4)
  - DYSTONIA [None]
  - DYSPNOEA [None]
  - SWOLLEN TONGUE [None]
  - SPEECH DISORDER [None]
